FAERS Safety Report 7520579-0 (Version None)
Quarter: 2011Q2

REPORT INFORMATION
  Report Type: 
  Country: None (occurrence: None)
  Receive Date: 20110603
  Receipt Date: 20110525
  Transmission Date: 20111010
  Serious: Yes (Hospitalization)
  Sender: FDA-Public Use
  Company Number: US-BIOGENIDEC-2011BI011840

PATIENT
  Age: 63 Year
  Sex: Female

DRUGS (1)
  1. TYSABRI [Suspect]
     Indication: MULTIPLE SCLEROSIS
     Route: 042
     Dates: start: 20080130

REACTIONS (6)
  - ASTHENIA [None]
  - CANDIDIASIS [None]
  - URINARY TRACT INFECTION [None]
  - GAIT DISTURBANCE [None]
  - CLOSTRIDIUM DIFFICILE COLITIS [None]
  - PAIN IN EXTREMITY [None]
